FAERS Safety Report 25290382 (Version 1)
Quarter: 2025Q2

REPORT INFORMATION
  Report Type: Spontaneous
  Country: DE (occurrence: DE)
  Receive Date: 20250510
  Receipt Date: 20250510
  Transmission Date: 20250717
  Serious: Yes (Death, Hospitalization, Other)
  Sender: TEVA
  Company Number: None

PATIENT
  Age: 59 Year
  Sex: Male

DRUGS (3)
  1. ETOPOSIDE [Suspect]
     Active Substance: ETOPOSIDE
     Indication: Haematopoietic stem cell mobilisation
     Route: 065
  2. GRANULOCYTE COLONY-STIMULATING FACTOR NOS [Suspect]
     Active Substance: GRANULOCYTE COLONY-STIMULATING FACTOR NOS
     Indication: Haematopoietic stem cell mobilisation
     Route: 065
  3. CYCLOPHOSPHAMIDE [Suspect]
     Active Substance: CYCLOPHOSPHAMIDE
     Indication: Haematopoietic stem cell mobilisation
     Route: 065

REACTIONS (3)
  - Septic shock [Fatal]
  - Neutropenia [Unknown]
  - Bacterial infection [Unknown]

NARRATIVE: CASE EVENT DATE: 20250420
